FAERS Safety Report 4411066-7 (Version None)
Quarter: 2004Q2

REPORT INFORMATION
  Report Type: 
  Country: None (occurrence: None)
  Receive Date: 20040630
  Receipt Date: 20040512
  Transmission Date: 20050107
  Serious: No
  Sender: FDA-Public Use
  Company Number: 04P-163-0260533-00

PATIENT
  Age: 69 Year
  Sex: Female

DRUGS (9)
  1. HUMIRA [Suspect]
     Indication: RHEUMATOID ARTHRITIS
     Dosage: 40 MG, 1 IN 2 WK, SUBCUTANEOUS
     Route: 058
     Dates: start: 20040416
  2. FLUID PILLS [Concomitant]
  3. FOLIC ACID [Concomitant]
  4. METHOTREXATE [Concomitant]
  5. WARFARIN SODIUM [Concomitant]
  6. RANITIDINE HYDROCHLORIDE [Concomitant]
  7. PREDNISONE [Concomitant]
  8. POTASSIUM [Concomitant]
  9. CALCIUM [Concomitant]

REACTIONS (1)
  - WEIGHT INCREASED [None]
